FAERS Safety Report 21550108 (Version 2)
Quarter: 2024Q3

REPORT INFORMATION
  Report Type: Spontaneous
  Country: US (occurrence: US)
  Receive Date: 20221103
  Receipt Date: 20240710
  Transmission Date: 20241016
  Serious: No
  Sender: SANOFI AVENTIS
  Company Number: US-SANOFI-01348076

PATIENT
  Age: 4 Year
  Sex: Male
  Weight: 29.12 kg

DRUGS (8)
  1. DUPIXENT [Suspect]
     Active Substance: DUPILUMAB
     Indication: Dermatitis atopic
     Dosage: 1 DF, 1X
     Route: 058
  2. DUPIXENT [Suspect]
     Active Substance: DUPILUMAB
     Dosage: 300 MG Q4W
     Route: 065
     Dates: start: 20220606
  3. SINGULAIR [Concomitant]
     Active Substance: MONTELUKAST SODIUM
  4. EPINEPHRINE [Concomitant]
     Active Substance: EPINEPHRINE
  5. FLOVENT [Concomitant]
     Active Substance: FLUTICASONE PROPIONATE
  6. TRIAMCINOLONE [Concomitant]
     Active Substance: TRIAMCINOLONE
  7. MOMETASONE [Concomitant]
     Active Substance: MOMETASONE
  8. CORTISONE [Concomitant]
     Active Substance: CORTISONE

REACTIONS (2)
  - Rash [Recovering/Resolving]
  - Product storage error [Unknown]
